FAERS Safety Report 14562897 (Version 1)
Quarter: 2018Q1

REPORT INFORMATION
  Report Type: Spontaneous
  Country: US (occurrence: US)
  Receive Date: 20180221
  Receipt Date: 20180221
  Transmission Date: 20180509
  Serious: No
  Sender: FDA-Public Use
  Company Number: None

PATIENT
  Age: 44 Year
  Sex: Female

DRUGS (1)
  1. CODEINE [Suspect]
     Active Substance: CODEINE
     Indication: BACK PAIN
     Dates: start: 19980101, end: 19980102

REACTIONS (3)
  - Abdominal pain upper [None]
  - Abdominal discomfort [None]
  - Therapy change [None]

NARRATIVE: CASE EVENT DATE: 19980101
